FAERS Safety Report 13744842 (Version 1)
Quarter: 2017Q3

REPORT INFORMATION
  Report Type: Spontaneous
  Country: US (occurrence: US)
  Receive Date: 20170711
  Receipt Date: 20170711
  Transmission Date: 20171127
  Serious: Yes (Disabling)
  Sender: FDA-Public Use
  Company Number: None

PATIENT
  Age: 41 Year
  Sex: Female
  Weight: 54 kg

DRUGS (2)
  1. CLONAZEPAM. [Suspect]
     Active Substance: CLONAZEPAM
     Indication: ANXIETY
     Dosage: ?          OTHER STRENGTH:MG;QUANTITY:1 TABLET(S);?AS NEEDED ORAL
     Route: 048
  2. CLONAZEPAM. [Suspect]
     Active Substance: CLONAZEPAM
     Indication: INSOMNIA
     Dosage: ?          OTHER STRENGTH:MG;QUANTITY:1 TABLET(S);?AS NEEDED ORAL
     Route: 048

REACTIONS (19)
  - Intervertebral disc protrusion [None]
  - Vision blurred [None]
  - Skin burning sensation [None]
  - Occipital neuralgia [None]
  - Joint stiffness [None]
  - Feeling abnormal [None]
  - Paraesthesia [None]
  - Balance disorder [None]
  - Headache [None]
  - Suicidal ideation [None]
  - Musculoskeletal stiffness [None]
  - Dizziness [None]
  - Muscle twitching [None]
  - Fatigue [None]
  - Anxiety [None]
  - Insomnia [None]
  - Irritability [None]
  - Drug withdrawal syndrome [None]
  - Sensory disturbance [None]

NARRATIVE: CASE EVENT DATE: 20160318
